FAERS Safety Report 9162761 (Version 1)
Quarter: 2013Q1

REPORT INFORMATION
  Report Type: Spontaneous
  Country: US (occurrence: US)
  Receive Date: 20130314
  Receipt Date: 20130314
  Transmission Date: 20140127
  Serious: Yes (Congenital Anomaly, Other)
  Sender: FDA-Public Use
  Company Number: US-TEVA-391149USA

PATIENT
  Sex: Male

DRUGS (2)
  1. FLUOXETINE [Suspect]
     Route: 064
  2. PROZAC [Suspect]

REACTIONS (3)
  - Cleft lip [Unknown]
  - Cleft palate [Unknown]
  - Neonatal aspiration [Unknown]
